FAERS Safety Report 25129040 (Version 1)
Quarter: 2025Q1

REPORT INFORMATION
  Report Type: Spontaneous
  Country: CA (occurrence: CA)
  Receive Date: 20250327
  Receipt Date: 20250327
  Transmission Date: 20250409
  Serious: Yes (Other)
  Sender: TEVA
  Company Number: CA-TEVA-VS-3314873

PATIENT
  Age: 86 Year
  Sex: Female

DRUGS (3)
  1. ETOPOSIDE [Suspect]
     Active Substance: ETOPOSIDE
     Indication: Product used for unknown indication
     Route: 065
  2. DEXAMETHASONE [Concomitant]
     Active Substance: DEXAMETHASONE
     Indication: Product used for unknown indication
     Route: 065
  3. AKYNZEO [Concomitant]
     Indication: Product used for unknown indication

REACTIONS (4)
  - Oropharyngeal discomfort [Recovered/Resolved]
  - Flushing [Recovered/Resolved]
  - Eye movement disorder [Recovered/Resolved]
  - Chest discomfort [Recovered/Resolved]
